FAERS Safety Report 8054102-1 (Version None)
Quarter: 2012Q1

REPORT INFORMATION
  Report Type: 
  Country: None (occurrence: None)
  Receive Date: 20120118
  Receipt Date: 20120112
  Transmission Date: 20120608
  Serious: Yes (Hospitalization)
  Sender: FDA-Public Use
  Company Number: PHHO2011NL019256

PATIENT
  Age: 59 Year
  Sex: Male
  Weight: 75 kg

DRUGS (6)
  1. MYCOPHENOLATE MOFETIL [Suspect]
     Indication: HEART TRANSPLANT
     Dosage: 500 MG, BID
     Route: 048
     Dates: start: 20110430
  2. BLINDED NO TREATMENT RECEIVED [Suspect]
     Indication: CARDIAC FAILURE
     Dosage: CODE NOT BROKEN
     Route: 048
     Dates: start: 20101008, end: 20110429
  3. ENALAPRIL MALEATE [Suspect]
     Indication: CARDIAC FAILURE
     Dosage: CODE NOT BROKEN
     Route: 048
     Dates: start: 20101008, end: 20110429
  4. BLINDED ALISKIREN [Suspect]
     Indication: CARDIAC FAILURE
     Dosage: CODE NOT BROKEN
     Route: 048
     Dates: start: 20101008, end: 20110429
  5. TACROLIMUS [Suspect]
     Indication: HEART TRANSPLANT
     Dosage: 9 MG, BID
     Route: 048
     Dates: start: 20110505
  6. PREDNISONE [Suspect]
     Indication: HEART TRANSPLANT
     Dosage: 25 MG, QD
     Route: 048
     Dates: start: 20110430

REACTIONS (2)
  - CONCOMITANT DISEASE PROGRESSION [None]
  - ARTHRITIS [None]
